FAERS Safety Report 14780652 (Version 1)
Quarter: 2018Q2

REPORT INFORMATION
  Report Type: Spontaneous
  Country: US (occurrence: US)
  Receive Date: 20180419
  Receipt Date: 20180419
  Transmission Date: 20180711
  Serious: No
  Sender: FDA-Public Use
  Company Number: US-NEUROCRINE BIOSCIENCES INC.-2018NBI00833

PATIENT
  Age: 54 Year
  Sex: Male

DRUGS (2)
  1. INGREZZA [Suspect]
     Active Substance: VALBENAZINE
     Indication: TARDIVE DYSKINESIA
     Route: 048
     Dates: start: 2017
  2. INGREZZA [Suspect]
     Active Substance: VALBENAZINE
     Dosage: INITIALLY 40 MG 2 CAPSULES AT BEDTIME FOR ONE MONTH ?THEN 80 MG CAPSULE THERE AFTER
     Route: 048
     Dates: start: 2017, end: 20180222

REACTIONS (1)
  - Sedation [Unknown]
